FAERS Safety Report 22099629 (Version 1)
Quarter: 2023Q1

REPORT INFORMATION
  Report Type: Spontaneous
  Country: HR (occurrence: HR)
  Receive Date: 20230315
  Receipt Date: 20230315
  Transmission Date: 20230418
  Serious: Yes (Other)
  Sender: FDA-Public Use
  Company Number: None

PATIENT

DRUGS (1)
  1. DESMOPRESSIN ACETATE [Suspect]
     Active Substance: DESMOPRESSIN ACETATE
     Indication: Diabetes insipidus
     Dosage: 2 SPRAYS 2 TIMES A DAY
     Route: 045
     Dates: start: 202301, end: 202302

REACTIONS (1)
  - Application site acne [Not Recovered/Not Resolved]

NARRATIVE: CASE EVENT DATE: 20230209
